FAERS Safety Report 9006635 (Version 1)
Quarter: 2013Q1

REPORT INFORMATION
  Report Type: Report from Study
  Country: ES (occurrence: ES)
  Receive Date: 20130110
  Receipt Date: 20130110
  Transmission Date: 20140127
  Serious: Yes (Hospitalization)
  Sender: FDA-Public Use
  Company Number: ES-BAXTER-2012BAX018135

PATIENT
  Age: 60 Year
  Sex: Female
  Weight: 55 kg

DRUGS (18)
  1. GENOXAL [Suspect]
     Indication: LYMPHOCYTIC LEUKAEMIA
     Route: 042
     Dates: start: 20080810
  2. GENOXAL [Suspect]
     Route: 042
     Dates: start: 20081211
  3. GENOXAL [Suspect]
     Route: 042
     Dates: start: 20090403
  4. RITUXIMAB [Suspect]
     Indication: LYMPHOCYTIC LEUKAEMIA
     Route: 042
     Dates: start: 20080810
  5. RITUXIMAB [Suspect]
     Route: 042
  6. RITUXIMAB [Suspect]
     Route: 042
     Dates: start: 20090608
  7. RITUXIMAB [Suspect]
     Route: 042
     Dates: start: 20091007
  8. RITUXIMAB [Suspect]
     Route: 042
     Dates: start: 20120817
  9. FLUDARABINE [Suspect]
     Indication: LYMPHOCYTIC LEUKAEMIA
     Route: 042
     Dates: start: 20080810
  10. FLUDARABINE [Suspect]
     Route: 042
     Dates: start: 20081211
  11. FLUDARABINE [Suspect]
     Route: 042
     Dates: start: 20090403
  12. BISOPROLOL FUMARATE [Concomitant]
     Indication: PRODUCT USED FOR UNKNOWN INDICATION
     Route: 065
     Dates: start: 20060505
  13. SULFATE FERREUX [Concomitant]
     Indication: PRODUCT USED FOR UNKNOWN INDICATION
     Route: 065
     Dates: start: 20090608
  14. ATORVASTATINA [Concomitant]
     Indication: PRODUCT USED FOR UNKNOWN INDICATION
     Route: 065
     Dates: start: 20081213
  15. OMEPRAZOLE [Concomitant]
     Indication: PRODUCT USED FOR UNKNOWN INDICATION
     Route: 065
     Dates: start: 20081203
  16. ALDACTONE [Concomitant]
     Indication: PRODUCT USED FOR UNKNOWN INDICATION
     Route: 065
     Dates: start: 20081203
  17. TORASEMIDE [Concomitant]
     Indication: PRODUCT USED FOR UNKNOWN INDICATION
     Route: 065
     Dates: start: 20081203
  18. ACENOCOUMAROL [Concomitant]
     Indication: PRODUCT USED FOR UNKNOWN INDICATION
     Route: 065
     Dates: start: 20090506

REACTIONS (3)
  - Febrile neutropenia [Recovered/Resolved]
  - Neutropenia [Recovered/Resolved]
  - Respiratory tract infection [Recovered/Resolved]
